FAERS Safety Report 7920499-3 (Version None)
Quarter: 2011Q4

REPORT INFORMATION
  Report Type: 
  Country: None (occurrence: None)
  Receive Date: 20111117
  Receipt Date: 20111110
  Transmission Date: 20120403
  Serious: Yes (Other)
  Sender: FDA-Public Use
  Company Number: PHEH2011US009189

PATIENT
  Sex: Female

DRUGS (11)
  1. RECLAST [Suspect]
     Dosage: UNK UKN, UNK
     Route: 042
     Dates: start: 20111107
  2. FORTEO [Suspect]
     Dosage: UNK UKN, UNK
  3. D 2000 [Concomitant]
     Dosage: UNK UKN, ONCE/SINGLE
  4. HUMALOG [Concomitant]
     Dosage: UNK UKN, UNK
  5. CITRACAL [Concomitant]
     Dosage: UNK UKN, UNK
  6. VITAMIN TAB [Concomitant]
     Dosage: UNK UKN, UNK
  7. METOPROLOL TARTRATE [Concomitant]
     Dosage: 25 MG, BID
  8. MORPHINE [Concomitant]
     Dosage: 15 MG, BID
  9. LIPITOR [Concomitant]
     Dosage: 20 MG, ONCE/SINGLE
  10. LANTUS [Concomitant]
     Dosage: UNK UKN, UNK
  11. NEXIUM [Concomitant]
     Dosage: 40 MG, BID

REACTIONS (1)
  - GINGIVAL INFECTION [None]
